FAERS Safety Report 13930403 (Version 1)
Quarter: 2017Q3

REPORT INFORMATION
  Report Type: Spontaneous
  Country: JP (occurrence: JP)
  Receive Date: 20170901
  Receipt Date: 20170901
  Transmission Date: 20171127
  Serious: Yes (Hospitalization)
  Sender: FDA-Public Use
  Company Number: JP-MYLANLABS-2017M1053246

PATIENT
  Age: 64 Year
  Sex: Male

DRUGS (3)
  1. INFLIXIMAB [Suspect]
     Active Substance: INFLIXIMAB
     Indication: RHEUMATOID ARTHRITIS
     Route: 065
  2. PREDNISOLONE. [Suspect]
     Active Substance: PREDNISOLONE
     Indication: RHEUMATOID ARTHRITIS
     Route: 065
  3. METHOTREXATE. [Suspect]
     Active Substance: METHOTREXATE
     Indication: RHEUMATOID ARTHRITIS
     Route: 065

REACTIONS (6)
  - Listeriosis [Unknown]
  - Shock haemorrhagic [Unknown]
  - Melaena [Recovering/Resolving]
  - Small intestinal perforation [Unknown]
  - Epstein-Barr virus infection [Recovering/Resolving]
  - Enterocolitis viral [Recovering/Resolving]

NARRATIVE: CASE EVENT DATE: 201507
